FAERS Safety Report 18057234 (Version 6)
Quarter: 2020Q3

REPORT INFORMATION
  Report Type: Report from Study
  Country: None (occurrence: NL)
  Receive Date: 20200723
  Receipt Date: 20200818
  Transmission Date: 20201103
  Serious: Yes (Hospitalization)
  Sender: FDA-Public Use
  Company Number: NL-ABBVIE-20K-114-3492449-00

PATIENT
  Sex: Male

DRUGS (2)
  1. DUODOPA [Suspect]
     Active Substance: CARBIDOPA\LEVODOPA
     Indication: PARKINSON^S DISEASE
     Dosage: MD: 3.0; ED: 2.0; CND: 3.1;/REMAINS AT 24 HOURS
     Route: 050
     Dates: start: 20190211
  2. DUODOPA [Suspect]
     Active Substance: CARBIDOPA\LEVODOPA
     Dosage: MORNING DOSE HAS BEEN INCREASED WITH 2.0
     Route: 050

REACTIONS (11)
  - Posture abnormal [Recovered/Resolved]
  - On and off phenomenon [Not Recovered/Not Resolved]
  - Therapeutic product effect variable [Unknown]
  - Resting tremor [Not Recovered/Not Resolved]
  - Gait disturbance [Recovering/Resolving]
  - Dehydration [Recovered/Resolved]
  - Wrong technique in device usage process [Not Recovered/Not Resolved]
  - Freezing phenomenon [Not Recovered/Not Resolved]
  - Mobility decreased [Recovering/Resolving]
  - Protein intolerance [Not Recovered/Not Resolved]
  - Nutritional supplementation [Recovered/Resolved]
